FAERS Safety Report 19907528 (Version 1)
Quarter: 2021Q4

REPORT INFORMATION
  Report Type: Spontaneous
  Country: MX (occurrence: MX)
  Receive Date: 20211001
  Receipt Date: 20211001
  Transmission Date: 20220303
  Serious: Yes (Death)
  Sender: FDA-Public Use
  Company Number: MX-BAYER-2021A221977

PATIENT
  Age: 23 Year

DRUGS (1)
  1. LAROTRECTINIB [Suspect]
     Active Substance: LAROTRECTINIB
     Indication: Glioma
     Dosage: 100 MG, BID
     Route: 048
     Dates: start: 20210912

REACTIONS (1)
  - Glioma [Fatal]
